FAERS Safety Report 13694114 (Version 1)
Quarter: 2017Q2

REPORT INFORMATION
  Report Type: Spontaneous
  Country: US (occurrence: US)
  Receive Date: 20170626
  Receipt Date: 20170626
  Transmission Date: 20170830
  Serious: No
  Sender: FDA-Public Use
  Company Number: None

PATIENT
  Age: 59 Year
  Sex: Female

DRUGS (1)
  1. TETRABENAZINE 25MG SUN [Suspect]
     Active Substance: TETRABENAZINE
     Indication: DYSTONIA
     Route: 048
     Dates: start: 20170408, end: 201705

REACTIONS (2)
  - Insomnia [None]
  - Blood glucose increased [None]

NARRATIVE: CASE EVENT DATE: 201704
